FAERS Safety Report 13006821 (Version 6)
Quarter: 2017Q4

REPORT INFORMATION
  Report Type: Spontaneous
  Country: US (occurrence: US)
  Receive Date: 20161207
  Receipt Date: 20171129
  Transmission Date: 20180320
  Serious: Yes (Hospitalization, Other)
  Sender: FDA-Public Use
  Company Number: US-ASTRAZENECA-2016SF28386

PATIENT
  Age: 701 Month
  Sex: Female
  Weight: 81.6 kg

DRUGS (14)
  1. FORXIGA [Suspect]
     Active Substance: DAPAGLIFLOZIN
     Indication: TYPE 2 DIABETES MELLITUS
     Dosage: 10.0MG UNKNOWN
     Route: 048
     Dates: start: 20141003, end: 201507
  2. ATENOLOL-CHLORTHALLDONE [Concomitant]
     Dosage: 50 MG-25 MG TAKE 1 TABLET BY ORAL ROUTE EVERY DAY
  3. BYETTA [Concomitant]
     Active Substance: EXENATIDE
     Dosage: 5MCG/0.02 INJECT 0.02 MILLILITER
  4. ACIPHEX [Concomitant]
     Active Substance: RABEPRAZOLE SODIUM
     Indication: GASTROOESOPHAGEAL REFLUX DISEASE
     Dosage: 20.0MG UNKNOWN
     Dates: start: 2000
  5. LEVOTHYROXINE. [Concomitant]
     Active Substance: LEVOTHYROXINE
     Indication: THYROID DISORDER
     Dosage: 112.0MG UNKNOWN
     Dates: start: 2001
  6. SYNTHROID [Concomitant]
     Active Substance: LEVOTHYROXINE SODIUM
  7. FORXIGA [Suspect]
     Active Substance: DAPAGLIFLOZIN
     Indication: TYPE 2 DIABETES MELLITUS
     Dosage: 10.0MG UNKNOWN
     Route: 048
     Dates: start: 20141003
  8. ATENOLOL. [Concomitant]
     Active Substance: ATENOLOL
     Indication: BLOOD PRESSURE INCREASED
     Dates: start: 2001
  9. INSULIN LISPRO [Concomitant]
     Active Substance: INSULIN LISPRO
     Dosage: INJECT 6 UNITS INTO THE SKIN 3 (THREE) TIMES DAILY
  10. INSULIN DETEMIR [Concomitant]
     Active Substance: INSULIN DETEMIR
  11. NOVALIN [Concomitant]
     Indication: DIABETES MELLITUS
     Dates: start: 2008
  12. METFORMIN [Concomitant]
     Active Substance: METFORMIN HYDROCHLORIDE
     Dates: start: 2010
  13. ATORVASTATIN CALCIUM. [Concomitant]
     Active Substance: ATORVASTATIN CALCIUM
     Dosage: 40MG  TAKE 1 TABLET BY ORAL ROUTE EVERY BEDTIME
  14. ATORVASTATIN [Concomitant]
     Active Substance: ATORVASTATIN
     Indication: BLOOD CHOLESTEROL INCREASED
     Dosage: 80.0MG UNKNOWN
     Dates: start: 2016

REACTIONS (8)
  - Acute kidney injury [Recovered/Resolved]
  - Renal failure [Unknown]
  - Cholelithiasis [Unknown]
  - Pyelonephritis acute [Unknown]
  - Diabetic ketoacidosis [Recovered/Resolved]
  - Urosepsis [Unknown]
  - Pyelonephritis [Recovered/Resolved]
  - Urinary tract infection [Unknown]

NARRATIVE: CASE EVENT DATE: 201501
